FAERS Safety Report 4770634-3 (Version None)
Quarter: 2005Q3

REPORT INFORMATION
  Report Type: 
  Country: None (occurrence: None)
  Receive Date: 20050915
  Receipt Date: 20020114
  Transmission Date: 20060218
  Serious: Yes (Life-Threatening, Hospitalization, Disabling)
  Sender: FDA-Public Use
  Company Number: US-MERCK-0201USA01251

PATIENT
  Age: 60 Year
  Sex: Female

DRUGS (3)
  1. VIOXX [Suspect]
     Indication: BACK PAIN
     Route: 048
     Dates: start: 20020109, end: 20020101
  2. VASOTEC RPD [Concomitant]
     Route: 065
  3. [COMPOSITION UNSPECIFIED] [Concomitant]
     Indication: DIABETES MELLITUS
     Route: 065

REACTIONS (1)
  - CEREBROVASCULAR ACCIDENT [None]
